FAERS Safety Report 23849884 (Version 1)
Quarter: 2024Q2

REPORT INFORMATION
  Report Type: Spontaneous
  Country: PL (occurrence: PL)
  Receive Date: 20240513
  Receipt Date: 20240513
  Transmission Date: 20240716
  Serious: Yes (Hospitalization)
  Sender: FDA-Public Use
  Company Number: PL-HQ SPECIALTY-PL-2024INT000043

PATIENT
  Age: 42 Year
  Sex: Male

DRUGS (15)
  1. DEXMEDETOMIDINE HYDROCHLORIDE [Suspect]
     Active Substance: DEXMEDETOMIDINE HYDROCHLORIDE
     Indication: Sedative therapy
     Dosage: 70 MICROGRAM
     Route: 042
  2. DEXMEDETOMIDINE HYDROCHLORIDE [Suspect]
     Active Substance: DEXMEDETOMIDINE HYDROCHLORIDE
     Dosage: 50 MICROGRAM
     Route: 042
  3. DEXMEDETOMIDINE HYDROCHLORIDE [Suspect]
     Active Substance: DEXMEDETOMIDINE HYDROCHLORIDE
     Dosage: CONTINUED AFTER EXTUBATION AND THROUGHOUT FIRST 24 H OF POSTOPERATIVE CARE UNIT (4 MCG,1 HR)
     Route: 042
  4. MAGNESIUM SULFATE [Suspect]
     Active Substance: MAGNESIUM SULFATE\MAGNESIUM SULFATE HEPTAHYDRATE
     Indication: Analgesic therapy
     Dosage: 4 GRAM
     Route: 042
  5. PROPOFOL [Suspect]
     Active Substance: PROPOFOL
     Indication: Induction of anaesthesia
     Dosage: 120 MILLIGRAM
     Route: 042
  6. KETAMINE [Suspect]
     Active Substance: KETAMINE
     Indication: Induction of anaesthesia
     Dosage: 40 MILLIGRAM
     Route: 042
  7. SEVOFLURANE [Suspect]
     Active Substance: SEVOFLURANE
     Indication: Induction of anaesthesia
     Dosage: UNK
     Route: 065
  8. BUPIVACAINE [Suspect]
     Active Substance: BUPIVACAINE
     Indication: Induction of anaesthesia
     Dosage: TOTAL VOLUME OF 40 ML 0.25%
     Route: 065
  9. LIDOCAINE [Suspect]
     Active Substance: LIDOCAINE
     Indication: Sedative therapy
     Dosage: 100 MILLIGRAM
     Route: 042
  10. LIDOCAINE [Suspect]
     Active Substance: LIDOCAINE
     Dosage: 0.9% NACL UP TO 50 ML (500 MG)
     Route: 042
  11. LIDOCAINE [Suspect]
     Active Substance: LIDOCAINE
     Dosage: CONTINUED AFTER THE EXTUBATION AND THROUGHOUT THE FIRST 24 H OF POSTOPERATIVE CARE UNIT (40 MG,1 HR)
     Route: 042
  12. ACETAMINOPHEN [Concomitant]
     Active Substance: ACETAMINOPHEN
     Indication: Product used for unknown indication
     Dosage: 1 GRAM
     Route: 042
  13. METAMIZOLE [Concomitant]
     Active Substance: METAMIZOLE
     Indication: Product used for unknown indication
     Dosage: 2.5 GRAM
     Route: 042
  14. ROCURONIUM BROMIDE [Concomitant]
     Active Substance: ROCURONIUM BROMIDE
     Indication: Product used for unknown indication
     Dosage: UNK
     Route: 065
  15. OXYGEN [Concomitant]
     Active Substance: OXYGEN
     Indication: Product used for unknown indication
     Dosage: HIGH FLOW
     Route: 045

REACTIONS (2)
  - Sedation complication [Unknown]
  - Somnolence [Recovered/Resolved]
